FAERS Safety Report 17929226 (Version 1)
Quarter: 2020Q2

REPORT INFORMATION
  Report Type: Spontaneous
  Country: CH (occurrence: CH)
  Receive Date: 20200623
  Receipt Date: 20200623
  Transmission Date: 20200714
  Serious: Yes (Other)
  Sender: FDA-Public Use
  Company Number: CH-B.I. PHARMACEUTICALS,INC./RIDGEFIELD-2020-SM-030182

PATIENT
  Age: 67 Year
  Sex: Male
  Weight: 85.6 kg

DRUGS (13)
  1. CO-AMOXICILLIN [Concomitant]
     Active Substance: AMOXICILLIN\CLAVULANATE POTASSIUM
     Indication: PRODUCT USED FOR UNKNOWN INDICATION
     Route: 050
     Dates: end: 20200329
  2. CATAPRESAN [Suspect]
     Active Substance: CLONIDINE
     Dosage: 10.-12.04.2020: 150 ?G P.O. 1-1-1 MIT AUSSCHLEICHSCHEMA (12.04. EINNAHME NICHT DOKUMENTIERT)
     Route: 048
     Dates: start: 20200410, end: 20200412
  3. FOSPROPOFOL SODIUM [Suspect]
     Active Substance: FOSPROPOFOL
     Indication: PRODUCT USED FOR UNKNOWN INDICATION
     Route: 065
     Dates: end: 20200409
  4. PIPERACILLIN SODIUM;TAZOBACTAM [Suspect]
     Active Substance: PIPERACILLIN SODIUM\TAZOBACTAM SODIUM
     Route: 050
     Dates: end: 20200407
  5. FENTANYLI CITRAS [Suspect]
     Active Substance: FENTANYL CITRATE
     Indication: PRODUCT USED FOR UNKNOWN INDICATION
     Route: 065
     Dates: end: 20200409
  6. CATAPRESAN [Suspect]
     Active Substance: CLONIDINE
     Indication: PRODUCT USED FOR UNKNOWN INDICATION
     Dosage: AUF INTENSIVSTATION (28.03.-09.04.2020 (KEINE NAHEREN ANGABEN)): CLONIDIN 400 ?G/H
     Route: 050
     Dates: start: 20200328, end: 20200409
  7. ACTEMRA [Suspect]
     Active Substance: TOCILIZUMAB
     Indication: PRODUCT USED FOR UNKNOWN INDICATION
     Route: 065
     Dates: start: 20200328, end: 20200329
  8. FRAGMIN [Concomitant]
     Active Substance: DALTEPARIN SODIUM
     Indication: PRODUCT USED FOR UNKNOWN INDICATION
     Route: 065
     Dates: end: 20200417
  9. PANTOPRAZOLE SODIUM. [Concomitant]
     Active Substance: PANTOPRAZOLE SODIUM
     Indication: PRODUCT USED FOR UNKNOWN INDICATION
     Route: 065
  10. EXFORGE [Concomitant]
     Active Substance: AMLODIPINE BESYLATE\VALSARTAN
     Indication: PRODUCT USED FOR UNKNOWN INDICATION
     Dosage: EXFORGE 5/80 TBL. 1-0-0; STOP AM 28.03.2020. STATTDESSEN CLONIDIN AUF INTENSIVSTATION
     Route: 065
     Dates: end: 20200328
  11. PIPERACILLIN SODIUM;TAZOBACTAM [Suspect]
     Active Substance: PIPERACILLIN SODIUM\TAZOBACTAM SODIUM
     Indication: PRODUCT USED FOR UNKNOWN INDICATION
     Route: 050
     Dates: start: 20200329, end: 20200402
  12. PLAQUENIL [HYDROXYCHLOROQUINE PHOSPHATE] [Suspect]
     Active Substance: HYDROXYCHLOROQUINE DIPHOSPHATE
     Indication: PRODUCT USED FOR UNKNOWN INDICATION
     Dosage: G6PD 30.03.2020: NORMAL
     Route: 065
     Dates: start: 20200328, end: 20200330
  13. KALETRA [Suspect]
     Active Substance: LOPINAVIR\RITONAVIR
     Indication: PRODUCT USED FOR UNKNOWN INDICATION
     Dosage: LOPINAVIR-SPIEGEL 30.03.2020: 10.7 MG/L. KEINE ANGABE ZUM ZEITPUNKT DER ABNAHME UND DAHER NICHT V
     Route: 065
     Dates: start: 20200328, end: 20200404

REACTIONS (1)
  - Drug-induced liver injury [Recovered/Resolved]

NARRATIVE: CASE EVENT DATE: 20200401
